FAERS Safety Report 20612714 (Version 1)
Quarter: 2022Q1

REPORT INFORMATION
  Report Type: Report from Study
  Country: IT (occurrence: IT)
  Receive Date: 20220318
  Receipt Date: 20220318
  Transmission Date: 20220423
  Serious: Yes (Death, Hospitalization)
  Sender: FDA-Public Use
  Company Number: IT-ABBVIE-22P-083-4293810-00

PATIENT
  Age: 72 Year
  Sex: Female

DRUGS (4)
  1. VENETOCLAX [Suspect]
     Active Substance: VENETOCLAX
     Indication: Acute myeloid leukaemia
     Dosage: 100 MG FOR 1 DAY, 200 MG FOR THE 2ND DAY (RAMP UP) THEN 400 MG/DIE
     Route: 048
     Dates: start: 20220131, end: 20220220
  2. VENETOCLAX [Suspect]
     Active Substance: VENETOCLAX
     Indication: Myeloproliferative neoplasm
  3. DECITABINE [Concomitant]
     Active Substance: DECITABINE
     Indication: Acute myeloid leukaemia
     Route: 042
     Dates: start: 20220131, end: 20220204
  4. DECITABINE [Concomitant]
     Active Substance: DECITABINE
     Indication: Myeloproliferative neoplasm

REACTIONS (2)
  - Febrile neutropenia [Fatal]
  - Anaemia [Unknown]

NARRATIVE: CASE EVENT DATE: 20220215
